FAERS Safety Report 7433602-9 (Version None)
Quarter: 2011Q2

REPORT INFORMATION
  Report Type: 
  Country: None (occurrence: None)
  Receive Date: 20110422
  Receipt Date: 20110408
  Transmission Date: 20111010
  Serious: Yes (Other)
  Sender: FDA-Public Use
  Company Number: CA-ABBOTT-98P-028-0556901-00

PATIENT
  Sex: Male
  Weight: 77.18 kg

DRUGS (2)
  1. NONE [Concomitant]
  2. LUPRON DEPOT [Suspect]
     Indication: PROSTATE CANCER
     Dosage: 7.5 MG
     Route: 030
     Dates: start: 19970611, end: 19971229

REACTIONS (2)
  - HAEMATURIA [None]
  - BLADDER CANCER [None]
